FAERS Safety Report 8513698 (Version 2)
Quarter: 2012Q4

REPORT INFORMATION
  Report Type: Spontaneous
  Country: None (occurrence: None)
  Receive Date: 20120410
  Receipt Date: 20120918
  Transmission Date: 20130627
  Serious: Yes (Hospitalization, Disabling)
  Sender: FDA-Public Use
  Company Number: AUR-APL-2012-01671

PATIENT
  Age: 69 Year
  Sex: Male

DRUGS (1)
  1. ALENDRONIC ACID [Suspect]
     Indication: OSTEOPOROSIS
     Dosage: (10 MG),ORAL
     Route: 048
     Dates: start: 2000, end: 20120312

REACTIONS (2)
  - Stress fracture [None]
  - FEMUR FRACTURE [None]
